FAERS Safety Report 5686203-7 (Version None)
Quarter: 2008Q1

REPORT INFORMATION
  Report Type: 
  Country: None (occurrence: None)
  Receive Date: 20080328
  Receipt Date: 20070705
  Transmission Date: 20080703
  Serious: No
  Sender: FDA-Public Use
  Company Number: US-BAYER-US-2007-025112

PATIENT
  Age: 26 Year
  Sex: Female
  Weight: 65 kg

DRUGS (3)
  1. MIRENA [Suspect]
     Route: 015
     Dates: start: 20050601
  2. LAMISIL /00992601/ [Concomitant]
     Indication: ONYCHOMYCOSIS
  3. ZELNORM /CAN/ [Concomitant]
     Indication: CONSTIPATION

REACTIONS (2)
  - IUCD COMPLICATION [None]
  - PREGNANCY WITH CONTRACEPTIVE DEVICE [None]
